FAERS Safety Report 21757903 (Version 1)
Quarter: 2022Q4

REPORT INFORMATION
  Report Type: Spontaneous
  Country: US (occurrence: None)
  Receive Date: 20221221
  Receipt Date: 20221221
  Transmission Date: 20230113
  Serious: No
  Sender: FDA-Public Use
  Company Number: US-ROCHE-3094581

PATIENT
  Age: 56 Year
  Sex: Male
  Weight: 52.2 kg

DRUGS (2)
  1. ACTIVASE [Suspect]
     Active Substance: ALTEPLASE
     Indication: Ischaemic stroke
     Dosage: X1 BOLUS OF 4.7 MG, THEN 42.3 MG INFUSION = TOTAL OF 47 MG
     Route: 042
     Dates: start: 20220509, end: 20220509
  2. ACTIVASE [Suspect]
     Active Substance: ALTEPLASE

REACTIONS (2)
  - Treatment delayed [Recovering/Resolving]
  - Wrong technique in device usage process [Unknown]

NARRATIVE: CASE EVENT DATE: 20220509
